FAERS Safety Report 14579122 (Version 1)
Quarter: 2018Q1

REPORT INFORMATION
  Report Type: Spontaneous
  Country: GB (occurrence: GB)
  Receive Date: 20180227
  Receipt Date: 20180227
  Transmission Date: 20180509
  Serious: Yes (Other)
  Sender: FDA-Public Use
  Company Number: GB-TEVA-2018-GB-862084

PATIENT
  Age: 36 Year
  Sex: Female
  Weight: 82 kg

DRUGS (6)
  1. AMOXICILLIN. [Suspect]
     Active Substance: AMOXICILLIN
     Route: 065
     Dates: start: 20180102
  2. CLARITHROMYCIN. [Concomitant]
     Active Substance: CLARITHROMYCIN
     Dates: start: 20180102
  3. HYDROCORTISONE. [Concomitant]
     Active Substance: HYDROCORTISONE
     Dosage: APPLY 2-3 TIMES/DAY
     Dates: start: 20171109, end: 20171116
  4. NYSTATIN. [Concomitant]
     Active Substance: NYSTATIN
     Dosage: APPLY AS DIRECTED
     Dates: start: 20171106, end: 20171107
  5. TRIMOVATE [Concomitant]
     Active Substance: CLOBETASONE BUTYRATE\NYSTATIN\OXYTETRACYCLINE CALCIUM
     Dosage: APPLY AS DIRECTED
     Dates: start: 20171013, end: 20171020
  6. BETAMETHASONE VALERATE. [Concomitant]
     Active Substance: BETAMETHASONE VALERATE
     Dosage: APPLY TWICE DAILY
     Dates: start: 20180102

REACTIONS (1)
  - Oral mucosal eruption [Unknown]

NARRATIVE: CASE EVENT DATE: 20180103
